FAERS Safety Report 9882243 (Version 2)
Quarter: 2014Q1

REPORT INFORMATION
  Report Type: Spontaneous
  Country: US (occurrence: US)
  Receive Date: 20140207
  Receipt Date: 20140326
  Transmission Date: 20141002
  Serious: Yes (Other)
  Sender: FDA-Public Use
  Company Number: US-BAYER-2014-019015

PATIENT
  Age: 32 Year
  Sex: Female
  Weight: 65 kg

DRUGS (2)
  1. MIRENA [Suspect]
     Indication: CONTRACEPTION
     Dosage: UNK
     Route: 015
     Dates: start: 20130226, end: 20140214
  2. XYLOCAINE [Concomitant]
     Dosage: UNK
     Dates: start: 20130226

REACTIONS (6)
  - Device dislocation [Recovered/Resolved]
  - Pain [None]
  - Genital haemorrhage [None]
  - Haemorrhagic ovarian cyst [None]
  - Uterine leiomyoma [None]
  - Pelvic pain [None]
